FAERS Safety Report 23197026 (Version 3)
Quarter: 2023Q4

REPORT INFORMATION
  Report Type: Spontaneous
  Country: CA (occurrence: CA)
  Receive Date: 20231117
  Receipt Date: 20231204
  Transmission Date: 20240109
  Serious: Yes (Other)
  Sender: FDA-Public Use
  Company Number: CA-PFIZER INC-PV202300163471

PATIENT
  Age: 73 Year
  Sex: Male
  Weight: 61.6 kg

DRUGS (12)
  1. RUXIENCE [Suspect]
     Active Substance: RITUXIMAB-PVVR
     Indication: Immune thrombocytopenia
     Dosage: 375 MG/M2, WEEKLY = 626 MG REPEATS 4 DOSES
     Route: 042
  2. RUXIENCE [Suspect]
     Active Substance: RITUXIMAB-PVVR
     Dosage: 626 MG
     Route: 042
     Dates: start: 20231102
  3. RUXIENCE [Suspect]
     Active Substance: RITUXIMAB-PVVR
     Dosage: 626 MG
     Route: 042
     Dates: start: 20231109
  4. RUXIENCE [Suspect]
     Active Substance: RITUXIMAB-PVVR
     Dosage: 626 MG
     Route: 042
     Dates: start: 20231109
  5. RUXIENCE [Suspect]
     Active Substance: RITUXIMAB-PVVR
     Dosage: 626 MG
     Route: 042
     Dates: start: 20231116
  6. RUXIENCE [Suspect]
     Active Substance: RITUXIMAB-PVVR
     Dosage: 626 MG
     Route: 042
     Dates: start: 20231116
  7. RUXIENCE [Suspect]
     Active Substance: RITUXIMAB-PVVR
     Dosage: 626 MG
     Route: 042
     Dates: start: 20231123
  8. RUXIENCE [Suspect]
     Active Substance: RITUXIMAB-PVVR
     Dosage: 626 MG
     Route: 042
     Dates: start: 20231123
  9. ACETAMINOPHEN [Concomitant]
     Active Substance: ACETAMINOPHEN
     Indication: Premedication
     Dosage: 650 MG
     Dates: start: 20231116, end: 20231116
  10. DIPHENHYDRAMINE [Concomitant]
     Active Substance: DIPHENHYDRAMINE
     Indication: Premedication
     Dosage: 50 MG
     Dates: start: 20231116, end: 20231116
  11. ASPIRIN [Concomitant]
     Active Substance: ASPIRIN
     Dosage: 81 MG, 2X/DAY (BID)
  12. JADENU [Concomitant]
     Active Substance: DEFERASIROX
     Indication: Iron overload
     Dosage: UNK

REACTIONS (6)
  - Bradycardia [Unknown]
  - Oxygen saturation decreased [Recovering/Resolving]
  - Dyspnoea [Recovering/Resolving]
  - Blood pressure diastolic decreased [Unknown]
  - Blood pressure fluctuation [Recovered/Resolved]
  - Off label use [Unknown]

NARRATIVE: CASE EVENT DATE: 20230101
